FAERS Safety Report 6053224-4 (Version None)
Quarter: 2009Q1

REPORT INFORMATION
  Report Type: 
  Country: None (occurrence: None)
  Receive Date: 20090123
  Receipt Date: 20090109
  Transmission Date: 20090719
  Serious: Yes (Death, Life-Threatening)
  Sender: FDA-Public Use
  Company Number: 8041374

PATIENT
  Age: 72 Year
  Sex: Female

DRUGS (13)
  1. KEPPRA [Suspect]
     Indication: EPILEPSY
     Dosage: PO
     Route: 048
     Dates: start: 20060929, end: 20061003
  2. CETIRIZINE [Suspect]
     Indication: PRURITUS
     Dosage: 1 DF 1/D PO
     Route: 048
     Dates: start: 20061002, end: 20061004
  3. GLIBENCLAMIDE [Suspect]
     Indication: DIABETES MELLITUS
     Dosage: 3.5 MG 1/D PO
     Route: 048
     Dates: start: 20060816, end: 20061004
  4. RAMIPRIL [Suspect]
     Indication: HYPERTENSION
     Dosage: 5 MG 2/D PO
     Route: 048
     Dates: start: 20060815, end: 20061004
  5. DEXAMETHASONE [Suspect]
     Indication: BRAIN OEDEMA
     Dosage: PO
     Route: 048
     Dates: start: 20060815, end: 20060927
  6. DEXAMETHASONE [Suspect]
     Indication: PROPHYLAXIS
     Dosage: PO
     Route: 048
     Dates: start: 20060815, end: 20060927
  7. DEXAMETHASONE TAB [Suspect]
     Indication: BRAIN OEDEMA
     Dosage: PO
     Route: 048
     Dates: start: 20060929, end: 20061004
  8. DEXAMETHASONE TAB [Suspect]
     Indication: PROPHYLAXIS
     Dosage: PO
     Route: 048
     Dates: start: 20060929, end: 20061004
  9. PANTOZOL /01263202/ [Suspect]
     Indication: PROPHYLAXIS
     Dosage: PO
     Route: 048
     Dates: start: 20060815, end: 20061004
  10. EXELON /01383201/ [Suspect]
     Indication: DEMENTIA ALZHEIMER'S TYPE
     Dosage: 4.5 MG 2/D PO
     Route: 048
     Dates: start: 20050914, end: 20061004
  11. ENOXAPARIN SODIUM [Suspect]
     Indication: THROMBOSIS PROPHYLAXIS
     Dosage: 1 DF 1/D SC
     Route: 058
     Dates: start: 20060929, end: 20061004
  12. PROMETHAZINE [Suspect]
     Indication: RESTLESSNESS
     Dosage: 5 DF 1/D PO
     Route: 048
     Dates: start: 20061003, end: 20061003
  13. ERGENYL CHRONO [Suspect]
     Indication: EPILEPSY
     Dosage: PO
     Route: 048
     Dates: start: 20061002, end: 20061004

REACTIONS (8)
  - DIABETES MELLITUS [None]
  - EPILEPSY [None]
  - HYPERTENSION [None]
  - MULTI-ORGAN FAILURE [None]
  - PRURITUS [None]
  - RESTLESSNESS [None]
  - STEVENS-JOHNSON SYNDROME [None]
  - TOXIC EPIDERMAL NECROLYSIS [None]
